FAERS Safety Report 7640125-0 (Version None)
Quarter: 2011Q3

REPORT INFORMATION
  Report Type: 
  Country: None (occurrence: None)
  Receive Date: 20110728
  Receipt Date: 20110630
  Transmission Date: 20111222
  Serious: No
  Sender: FDA-Public Use
  Company Number: US-BAYER-2011-058831

PATIENT
  Age: 64 Year
  Sex: Male
  Weight: 109 kg

DRUGS (5)
  1. ALEVE (CAPLET) [Suspect]
     Indication: ARTHRITIS
     Dosage: 3 DF, TID
     Route: 048
     Dates: start: 20110629
  2. NEXIUM [Concomitant]
  3. SEROQUEL [Concomitant]
  4. LISINOPRIL [Concomitant]
  5. ARTHROTEC [Concomitant]

REACTIONS (1)
  - NO ADVERSE EVENT [None]
